FAERS Safety Report 8208083-8 (Version None)
Quarter: 2012Q1

REPORT INFORMATION
  Report Type: 
  Country: None (occurrence: None)
  Receive Date: 20120314
  Receipt Date: 20120301
  Transmission Date: 20120608
  Serious: Yes (Hospitalization)
  Sender: FDA-Public Use
  Company Number: PHEH2012US004956

PATIENT
  Sex: Male

DRUGS (3)
  1. NEORAL [Suspect]
     Indication: RENAL TRANSPLANT
     Dosage: UNK UKN, UNK
  2. MYFORTIC [Suspect]
     Dosage: UNK UKN, UNK
  3. MYCOPHENOLATE MOFETIL [Concomitant]
     Dosage: 500 MG, UNK

REACTIONS (3)
  - PLEURAL EFFUSION [None]
  - PULMONARY CONGESTION [None]
  - DYSPNOEA [None]
